FAERS Safety Report 14342939 (Version 2)
Quarter: 2018Q1

REPORT INFORMATION
  Report Type: Report from Study
  Country: US (occurrence: US)
  Receive Date: 20180102
  Receipt Date: 20180103
  Transmission Date: 20180509
  Serious: Yes (Other)
  Sender: FDA-Public Use
  Company Number: US-UCBSA-2017053293

PATIENT
  Sex: Female

DRUGS (2)
  1. KEPPRA [Suspect]
     Active Substance: LEVETIRACETAM
     Indication: SEIZURE
     Dosage: UNK
  2. LACOSAMIDE. [Suspect]
     Active Substance: LACOSAMIDE
     Indication: SEIZURE
     Dosage: 100 MG, 2X/DAY (BID)

REACTIONS (2)
  - Autoimmune disorder [Unknown]
  - Lung neoplasm malignant [Unknown]
